FAERS Safety Report 14481706 (Version 1)
Quarter: 2018Q1

REPORT INFORMATION
  Report Type: Spontaneous
  Country: US (occurrence: US)
  Receive Date: 20180202
  Receipt Date: 20180202
  Transmission Date: 20180509
  Serious: Yes (Other)
  Sender: FDA-Public Use
  Company Number: None

PATIENT
  Age: 66 Year
  Sex: Female
  Weight: 68.95 kg

DRUGS (7)
  1. VIMPAT [Suspect]
     Active Substance: LACOSAMIDE
     Indication: FOCAL DYSCOGNITIVE SEIZURES
     Route: 048
     Dates: start: 201702, end: 201711
  2. METOPROLOL. [Concomitant]
     Active Substance: METOPROLOL
  3. CALCIUM [Concomitant]
     Active Substance: CALCIUM
  4. BRIVIACT [Concomitant]
     Active Substance: BRIVARACETAM
  5. ATORVASTATIN [Concomitant]
     Active Substance: ATORVASTATIN
  6. BABY ASPIRIN [Concomitant]
     Active Substance: ASPIRIN
  7. VENLAFAXINE [Concomitant]
     Active Substance: VENLAFAXINE HYDROCHLORIDE

REACTIONS (1)
  - Rash [None]

NARRATIVE: CASE EVENT DATE: 201708
